FAERS Safety Report 7680472-X (Version None)
Quarter: 2011Q3

REPORT INFORMATION
  Report Type: 
  Country: None (occurrence: None)
  Receive Date: 20110812
  Receipt Date: 20110805
  Transmission Date: 20111222
  Serious: Yes (Other)
  Sender: FDA-Public Use
  Company Number: JP-CEPHALON-2011004234

PATIENT
  Sex: Male
  Weight: 67 kg

DRUGS (7)
  1. BENDAMUSTINE HCL [Suspect]
     Route: 042
     Dates: start: 20110407, end: 20110408
  2. OMEPRAZOLE [Concomitant]
  3. BENDAMUSTINE HCL [Suspect]
     Indication: B-CELL LYMPHOMA
     Route: 042
     Dates: start: 20101220, end: 20101221
  4. VALACYCLOVIR HYDROCHLORIDE [Concomitant]
  5. BENDAMUSTINE HCL [Suspect]
     Route: 042
     Dates: start: 20110224, end: 20110225
  6. MAGNESIUM OXIDE [Concomitant]
  7. SULFAMETHOXAZOLE AND TRIMETHOPRIM [Concomitant]

REACTIONS (1)
  - BONE MARROW FAILURE [None]
